FAERS Safety Report 24670927 (Version 1)
Quarter: 2024Q4

REPORT INFORMATION
  Report Type: Spontaneous
  Country: US (occurrence: None)
  Receive Date: 20241127
  Receipt Date: 20241127
  Transmission Date: 20250115
  Serious: No
  Sender: Public
  Company Number: None

PATIENT
  Age: 28 Year
  Sex: Female
  Weight: 73.8 kg

DRUGS (16)
  1. DIPHENHYDRAMINE [Suspect]
     Active Substance: DIPHENHYDRAMINE
     Indication: Oral herpes
     Dosage: FREQUENCY : EVERY 4 HOURS;?
     Route: 048
     Dates: start: 20241113, end: 20241120
  2. Humira, [Concomitant]
  3. Topiramate, [Concomitant]
  4. Famotidine, [Concomitant]
  5. Amoxycilin, [Concomitant]
  6. Norethindrone, [Concomitant]
  7. LIDOCAINE HYDROCHLORIDE [Concomitant]
     Active Substance: LIDOCAINE HYDROCHLORIDE
  8. sulfacetamine Sodium Susp, [Concomitant]
  9. Clindamycin Phosphat Gel [Concomitant]
  10. Trettinoin Micro Gel, [Concomitant]
  11. Methyl Prednisolone [Concomitant]
  12. Magnesium Citrate, [Concomitant]
  13. Vitamin C, [Concomitant]
  14. Probiotic, [Concomitant]
  15. Advil [Concomitant]
  16. Walgreens Severe Cold and Cough Night Time [Concomitant]

REACTIONS (1)
  - Drug screen false positive [None]

NARRATIVE: CASE EVENT DATE: 20241118
